FAERS Safety Report 6922381-7 (Version None)
Quarter: 2010Q3

REPORT INFORMATION
  Report Type: 
  Country: None (occurrence: None)
  Receive Date: 20100813
  Receipt Date: 20100805
  Transmission Date: 20110219
  Serious: Yes (Other)
  Sender: FDA-Public Use
  Company Number: US-JNJFOC-20100202831

PATIENT
  Sex: Female
  Weight: 61.24 kg

DRUGS (10)
  1. DURAGESIC-100 [Suspect]
     Indication: ARTHRITIS
     Route: 062
  2. DURAGESIC-100 [Suspect]
     Route: 062
  3. DURAGESIC-100 [Suspect]
     Indication: FIBROMYALGIA
     Route: 062
  4. DURAGESIC-100 [Suspect]
     Route: 062
  5. DURAGESIC-100 [Suspect]
     Dosage: NDC NUMBER# 50458-0093-05
     Route: 062
  6. DURAGESIC-100 [Suspect]
     Route: 062
  7. DURAGESIC-100 [Suspect]
     Dosage: NDC NUMBER# 50458-0093-05
     Route: 062
  8. DURAGESIC-100 [Suspect]
     Route: 062
  9. ROBAXIN [Concomitant]
     Indication: MUSCLE RELAXANT THERAPY
     Route: 048
  10. AMBIEN [Concomitant]
     Indication: INSOMNIA
     Route: 048

REACTIONS (9)
  - CONSTIPATION [None]
  - DRUG ADMINISTERED AT INAPPROPRIATE SITE [None]
  - DRUG INEFFECTIVE [None]
  - DRUG TOXICITY [None]
  - FEELING OF BODY TEMPERATURE CHANGE [None]
  - GASTROINTESTINAL PAIN [None]
  - PRODUCT ADHESION ISSUE [None]
  - PRODUCT QUALITY ISSUE [None]
  - WITHDRAWAL SYNDROME [None]
